FAERS Safety Report 8902449 (Version 2)
Quarter: 2012Q4

REPORT INFORMATION
  Report Type: 
  Country: US (occurrence: US)
  Receive Date: 20121112
  Receipt Date: 20121121
  Transmission Date: 20130627
  Serious: Yes (Other)
  Sender: FDA-Public Use
  Company Number: US-JNJFOC-20121104350

PATIENT
  Age: 23 Year
  Sex: Female

DRUGS (20)
  1. ZYRTEC [Suspect]
     Indication: COUGH
     Route: 065
  2. ZYRTEC [Suspect]
     Indication: COUGH
     Route: 065
  3. ZYRTEC [Suspect]
     Indication: COUGH
     Route: 065
  4. ZYRTEC [Suspect]
     Indication: COUGH
     Route: 065
  5. ZYRTEC [Suspect]
     Indication: CHEST DISCOMFORT
     Route: 065
  6. ZYRTEC [Suspect]
     Indication: CHEST DISCOMFORT
     Route: 065
  7. ZYRTEC [Suspect]
     Indication: CHEST DISCOMFORT
     Route: 065
  8. ZYRTEC [Suspect]
     Indication: CHEST DISCOMFORT
     Route: 065
  9. ZYRTEC [Suspect]
     Indication: HOUSE DUST ALLERGY
     Route: 065
  10. ZYRTEC [Suspect]
     Indication: HOUSE DUST ALLERGY
     Route: 065
  11. ZYRTEC [Suspect]
     Indication: HOUSE DUST ALLERGY
     Route: 065
  12. ZYRTEC [Suspect]
     Indication: HOUSE DUST ALLERGY
     Route: 065
  13. ZYRTEC [Suspect]
     Indication: SEASONAL ALLERGY
     Route: 065
  14. ZYRTEC [Suspect]
     Indication: SEASONAL ALLERGY
     Route: 065
  15. ZYRTEC [Suspect]
     Indication: SEASONAL ALLERGY
     Route: 065
  16. ZYRTEC [Suspect]
     Indication: SEASONAL ALLERGY
     Route: 065
  17. ZYRTEC [Suspect]
     Indication: SEASONAL ALLERGY
     Route: 065
  18. ZYRTEC [Suspect]
     Indication: SEASONAL ALLERGY
     Route: 065
  19. ZYRTEC [Suspect]
     Indication: SEASONAL ALLERGY
     Route: 065
  20. ZYRTEC [Suspect]
     Indication: SEASONAL ALLERGY
     Route: 065

REACTIONS (22)
  - Depression [Unknown]
  - Pain in extremity [Unknown]
  - Pruritus [Unknown]
  - Dysphagia [Unknown]
  - Panic attack [Unknown]
  - Dry mouth [Unknown]
  - Nasal discomfort [Unknown]
  - Headache [Unknown]
  - Paraesthesia [Unknown]
  - Pain [Unknown]
  - Back pain [Unknown]
  - Influenza like illness [Unknown]
  - Chest discomfort [Unknown]
  - Throat irritation [Unknown]
  - Nasal congestion [Unknown]
  - Cough [Unknown]
  - Chest pain [Unknown]
  - Migraine [Unknown]
  - Blood pressure increased [Unknown]
  - Paraesthesia [Unknown]
  - Off label use [Unknown]
  - Hypoaesthesia [Unknown]
